FAERS Safety Report 23618810 (Version 1)
Quarter: 2024Q1

REPORT INFORMATION
  Report Type: Spontaneous
  Country: PL (occurrence: None)
  Receive Date: 20240311
  Receipt Date: 20240311
  Transmission Date: 20240410
  Serious: Yes (Other)
  Sender: FDA-Public Use
  Company Number: PL-ROCHE-3521744

PATIENT
  Sex: Male

DRUGS (1)
  1. TECENTRIQ [Suspect]
     Active Substance: ATEZOLIZUMAB
     Indication: Small cell lung cancer
     Dosage: ON 22/JAN/2024, HE RECEIVED THE MOST RECENT DOSE OF ATEZOLIZUMAB.
     Route: 065
     Dates: start: 20240102

REACTIONS (1)
  - Metastases to central nervous system [Unknown]
